FAERS Safety Report 7927543-8 (Version None)
Quarter: 2011Q4

REPORT INFORMATION
  Report Type: 
  Country: None (occurrence: None)
  Receive Date: 20111118
  Receipt Date: 20111108
  Transmission Date: 20120403
  Serious: Yes (Hospitalization)
  Sender: FDA-Public Use
  Company Number: US-BAYER-2011-050201

PATIENT
  Age: 36 Year
  Sex: Female
  Weight: 123.5 kg

DRUGS (12)
  1. YAZ [Suspect]
     Indication: CONTRACEPTION
     Dosage: UNK
     Dates: start: 20070301, end: 20090601
  2. ASCORBIC ACID [Concomitant]
     Dosage: UNK
     Dates: start: 20010101
  3. NYSTATIN [Concomitant]
     Indication: CANDIDIASIS
     Dosage: UNK
     Dates: start: 20080101, end: 20110101
  4. GNC WOMEN+#8217;S VITAMIN [Concomitant]
     Indication: MEDICAL DIET
     Dosage: UNK UNK, QD
     Dates: start: 20060101, end: 20090101
  5. DIAZEPAM [Concomitant]
  6. IBUPROFEN [Concomitant]
     Dosage: UNK
     Dates: start: 20010101
  7. BUMEX [Concomitant]
     Indication: MENIERE'S DISEASE
     Dosage: UNK
     Dates: start: 20050101
  8. PREDNISONE TAB [Concomitant]
     Indication: MENIERE'S DISEASE
     Dosage: 45 MG, QD
     Dates: start: 20060101, end: 20090101
  9. CALCIUM [Concomitant]
     Indication: MEDICAL DIET
     Dosage: UNK
     Dates: start: 20060101, end: 20090101
  10. NAPROXEN [Concomitant]
     Dosage: UNK
     Dates: start: 20010101
  11. KLOR-CON [Concomitant]
     Indication: DIURETIC THERAPY
     Dosage: UNK
     Dates: start: 20070101
  12. FISH OIL [Concomitant]

REACTIONS (8)
  - PULMONARY EMBOLISM [None]
  - PAIN [None]
  - OEDEMA PERIPHERAL [None]
  - PAIN IN EXTREMITY [None]
  - ARTHRALGIA [None]
  - ARTERIAL INJURY [None]
  - DEEP VEIN THROMBOSIS [None]
  - DYSPNOEA [None]
